FAERS Safety Report 9351796 (Version 1)
Quarter: 2013Q2

REPORT INFORMATION
  Report Type: Spontaneous
  Country: DE (occurrence: DE)
  Receive Date: 20130617
  Receipt Date: 20130617
  Transmission Date: 20140414
  Serious: Yes (Hospitalization)
  Sender: FDA-Public Use
  Company Number: DE-BIOGENIDEC-2013BI052252

PATIENT
  Age: 53 Year
  Sex: Female

DRUGS (2)
  1. AVONEX [Suspect]
     Indication: MULTIPLE SCLEROSIS
     Route: 030
     Dates: start: 20110125
  2. UNKNOWN MEDICATION [Concomitant]
     Indication: PROPHYLAXIS
     Dates: start: 20110125

REACTIONS (5)
  - Oropharyngitis fungal [Recovered/Resolved with Sequelae]
  - Weight decreased [Recovered/Resolved]
  - Pneumonia [Recovered/Resolved with Sequelae]
  - Bronchitis chronic [Not Recovered/Not Resolved]
  - Memory impairment [Not Recovered/Not Resolved]
